FAERS Safety Report 21322730 (Version 1)
Quarter: 2022Q3

REPORT INFORMATION
  Report Type: Report from Study
  Country: FR (occurrence: None)
  Receive Date: 20220912
  Receipt Date: 20220912
  Transmission Date: 20221026
  Serious: Yes (Hospitalization)
  Sender: FDA-Public Use
  Company Number: 2022A309916

PATIENT
  Age: 833 Month
  Sex: Female
  Weight: 53 kg

DRUGS (2)
  1. EVUSHELD [Suspect]
     Active Substance: CILGAVIMAB\TIXAGEVIMAB
     Indication: COVID-19 prophylaxis
     Dosage: ONCE/SINGLE ADMINISTRATION
     Route: 030
     Dates: start: 20220210
  2. BENDAMUSTINE/RITUXIMAB/CYTARABINE [Concomitant]
     Indication: Immunosuppressant drug therapy
     Route: 065

REACTIONS (2)
  - COVID-19 [Unknown]
  - Product use issue [Unknown]

NARRATIVE: CASE EVENT DATE: 20220210
